FAERS Safety Report 6302799-6 (Version None)
Quarter: 2009Q3

REPORT INFORMATION
  Report Type: 
  Country: None (occurrence: None)
  Receive Date: 20090810
  Receipt Date: 20090527
  Transmission Date: 20100115
  Serious: No
  Sender: FDA-Public Use
  Company Number: A0786451A

PATIENT
  Age: 57 Year
  Sex: Male

DRUGS (3)
  1. ALTABAX [Suspect]
     Indication: PENILE INFECTION
     Dosage: 1APP TWICE PER DAY
     Route: 061
     Dates: start: 20090527
  2. LISINOPRIL [Concomitant]
  3. DOXYCYCLINE [Concomitant]

REACTIONS (2)
  - BURNING SENSATION [None]
  - PARAESTHESIA [None]
